FAERS Safety Report 7154210-3 (Version None)
Quarter: 2010Q4

REPORT INFORMATION
  Report Type: 
  Country: None (occurrence: None)
  Receive Date: 20101213
  Receipt Date: 20101130
  Transmission Date: 20110411
  Serious: Yes (Other)
  Sender: FDA-Public Use
  Company Number: FR-AMGEN-FRASP2010007646

PATIENT

DRUGS (2)
  1. ETANERCEPT [Suspect]
     Dosage: 50 MG, WEEKLY
     Dates: start: 20050101, end: 20100801
  2. ETANERCEPT [Suspect]
     Dosage: 25 MG, WEEKLY
     Dates: start: 20100801

REACTIONS (4)
  - HYPERHIDROSIS [None]
  - OROPHARYNGEAL PAIN [None]
  - RHEUMATOID ARTHRITIS [None]
  - THYROID DISORDER [None]
